FAERS Safety Report 17442202 (Version 2)
Quarter: 2020Q1

REPORT INFORMATION
  Report Type: Spontaneous
  Country: US (occurrence: US)
  Receive Date: 20200220
  Receipt Date: 20200306
  Transmission Date: 20200409
  Serious: No
  Sender: FDA-Public Use
  Company Number: US-PFIZER INC-2020075527

PATIENT
  Age: 39 Year
  Sex: Male
  Weight: 74.84 kg

DRUGS (2)
  1. PHENYTOIN SODIUM. [Suspect]
     Active Substance: PHENYTOIN SODIUM
     Dosage: 600 MG, DAILY (300 MG IN MORNING AND 300 MG IN EVENING)/(6X A DAY 100 MG)
     Route: 048
  2. PHENYTOIN SODIUM. [Suspect]
     Active Substance: PHENYTOIN SODIUM
     Indication: SEIZURE
     Dosage: 600 MG, DAILY (300 MG IN MORNING AND 300 MG IN EVENING)/(6X A DAY 100 MG)
     Route: 048
     Dates: end: 20200208

REACTIONS (1)
  - Weight decreased [Unknown]
